FAERS Safety Report 20349941 (Version 1)
Quarter: 2022Q1

REPORT INFORMATION
  Report Type: Report from Study
  Country: US (occurrence: US)
  Receive Date: 20220119
  Receipt Date: 20220119
  Transmission Date: 20220423
  Serious: Yes (Death, Hospitalization, Other)
  Sender: FDA-Public Use
  Company Number: US-BRISTOL-MYERS SQUIBB COMPANY-BMS-2022-007418

PATIENT
  Age: 61 Year
  Sex: Male
  Weight: 64.9 kg

DRUGS (2)
  1. NIVOLUMAB [Suspect]
     Active Substance: NIVOLUMAB
     Indication: Oesophageal adenocarcinoma stage IV
     Dosage: UNK
     Route: 065
     Dates: start: 20220106
  2. RUCAPARIB [Suspect]
     Active Substance: RUCAPARIB
     Indication: Oesophageal adenocarcinoma stage IV
     Dosage: UNK
     Route: 065
     Dates: start: 20220106, end: 20220109

REACTIONS (2)
  - Sepsis [Fatal]
  - Pneumonia [Fatal]

NARRATIVE: CASE EVENT DATE: 20220110
